FAERS Safety Report 25287751 (Version 11)
Quarter: 2025Q3

REPORT INFORMATION
  Report Type: Spontaneous
  Country: PA (occurrence: PA)
  Receive Date: 20250509
  Receipt Date: 20250805
  Transmission Date: 20251021
  Serious: No
  Sender: PFIZER
  Company Number: PA-PFIZER INC-PV202500054738

PATIENT
  Age: 13 Year
  Sex: Male

DRUGS (1)
  1. GENOTROPIN [Suspect]
     Active Substance: SOMATROPIN
     Dosage: 1.8 MG, 1X/DAY
     Route: 058

REACTIONS (8)
  - Device material issue [Unknown]
  - Device breakage [Unknown]
  - Device deployment issue [Unknown]
  - Device delivery system issue [Unknown]
  - Device leakage [Unknown]
  - Device information output issue [Unknown]
  - Drug dose omission by device [Unknown]
  - Product communication issue [Unknown]

NARRATIVE: CASE EVENT DATE: 20250706
